FAERS Safety Report 14068901 (Version 1)
Quarter: 2017Q4

REPORT INFORMATION
  Report Type: Spontaneous
  Country: FR (occurrence: FR)
  Receive Date: 20171010
  Receipt Date: 20171010
  Transmission Date: 20180321
  Serious: Yes (Death)
  Sender: FDA-Public Use
  Company Number: FR-ACTELION-A-CH2017-160449

PATIENT
  Age: 16 Year
  Sex: Female

DRUGS (2)
  1. ZAVESCA [Suspect]
     Active Substance: MIGLUSTAT
     Indication: NIEMANN-PICK DISEASE
     Dosage: 200 MG, BID
     Route: 048
     Dates: start: 20100515, end: 20110701
  2. ZAVESCA [Suspect]
     Active Substance: MIGLUSTAT
     Dosage: 400 MG, BID
     Route: 048

REACTIONS (2)
  - Death [Fatal]
  - Splenomegaly [Unknown]

NARRATIVE: CASE EVENT DATE: 201706
